FAERS Safety Report 19224860 (Version 1)
Quarter: 2021Q2

REPORT INFORMATION
  Report Type: Spontaneous
  Country: US (occurrence: US)
  Receive Date: 20210505
  Receipt Date: 20210505
  Transmission Date: 20210717
  Serious: No
  Sender: FDA-Public Use
  Company Number: US-ROCHE-2646074

PATIENT
  Sex: Female

DRUGS (15)
  1. GABAPENTIN. [Concomitant]
     Active Substance: GABAPENTIN
  2. FUROSEMIDE. [Concomitant]
     Active Substance: FUROSEMIDE
  3. LOSARTAN POTASSIUM. [Concomitant]
     Active Substance: LOSARTAN POTASSIUM
  4. MONTELUKAST SODIUM. [Concomitant]
     Active Substance: MONTELUKAST SODIUM
  5. VITAMIN D3 [Concomitant]
     Active Substance: CHOLECALCIFEROL
  6. LEVOTHYROXINE SODIUM. [Concomitant]
     Active Substance: LEVOTHYROXINE SODIUM
  7. AZITHROMYCIN ANHYDROUS. [Concomitant]
     Active Substance: AZITHROMYCIN ANHYDROUS
  8. CALCIUM [Concomitant]
     Active Substance: CALCIUM
  9. LORATADINE. [Concomitant]
     Active Substance: LORATADINE
  10. OMEPRAZOLE. [Concomitant]
     Active Substance: OMEPRAZOLE
  11. PRESERVISION AREDS 2 [Concomitant]
     Active Substance: MINERALS\VITAMINS
  12. ESBRIET [Suspect]
     Active Substance: PIRFENIDONE
     Indication: IDIOPATHIC PULMONARY FIBROSIS
     Dosage: FREQUENCY: TAKE 1 TABLET 3 TIMES DAILY 1 WEEK, THEN 2 TABLETS 3 TIMES DAILY 1 WEEK, THEN 3 TABLETS 3
     Route: 048
  13. LABETALOL HCL [Concomitant]
     Active Substance: LABETALOL HYDROCHLORIDE
  14. PREDNISONE. [Concomitant]
     Active Substance: PREDNISONE
  15. ATORVASTATIN CALCIUM. [Concomitant]
     Active Substance: ATORVASTATIN CALCIUM

REACTIONS (1)
  - Gastrointestinal disorder [Unknown]
